FAERS Safety Report 20118851 (Version 10)
Quarter: 2022Q2

REPORT INFORMATION
  Report Type: Spontaneous
  Country: JP (occurrence: JP)
  Receive Date: 20211126
  Receipt Date: 20220617
  Transmission Date: 20220720
  Serious: Yes (Death, Life-Threatening, Hospitalization, Other)
  Sender: FDA-Public Use
  Company Number: JP-AMGEN-JPNSP2021143179

PATIENT
  Age: 65 Year
  Sex: Female
  Weight: 46 kg

DRUGS (24)
  1. BLINCYTO [Suspect]
     Active Substance: BLINATUMOMAB
     Indication: B precursor type acute leukaemia
     Dosage: 19.95 MICROGRAM, QD
     Route: 041
     Dates: start: 20210810, end: 20210906
  2. BLINCYTO [Suspect]
     Active Substance: BLINATUMOMAB
     Dosage: 19.95 MICROGRAM, QD
     Route: 041
     Dates: start: 20210922, end: 20211019
  3. BLINCYTO [Suspect]
     Active Substance: BLINATUMOMAB
     Dosage: 28 MICROGRAM, QD
     Route: 041
     Dates: start: 2021, end: 2021
  4. BLINCYTO [Suspect]
     Active Substance: BLINATUMOMAB
     Dosage: 19.95 MICROGRAM, QD
     Route: 041
     Dates: start: 20211103, end: 20211130
  5. BLINCYTO [Suspect]
     Active Substance: BLINATUMOMAB
     Dosage: 19.95 MICROGRAM, QD
     Route: 041
     Dates: start: 20211222, end: 20220118
  6. FILGRASTIM [Suspect]
     Active Substance: FILGRASTIM
     Indication: Neutrophil count decreased
     Dosage: UNK
     Route: 065
     Dates: start: 20210819
  7. METHOTREXATE [Suspect]
     Active Substance: METHOTREXATE
     Indication: Prophylaxis
     Dosage: 3700 MILLIGRAM, QD
     Route: 065
     Dates: start: 20210802, end: 20210802
  8. METHOTREXATE [Suspect]
     Active Substance: METHOTREXATE
     Indication: Leukaemia
     Dosage: 3600 MILLIGRAM, QD
     Route: 065
     Dates: start: 20210913, end: 20210913
  9. METHOTREXATE [Suspect]
     Active Substance: METHOTREXATE
     Dosage: 2700 MILLIGRAM, QD
     Route: 065
     Dates: start: 20211025, end: 20211025
  10. METHOTREXATE [Suspect]
     Active Substance: METHOTREXATE
     Dosage: 3600 MILLIGRAM, QD
     Route: 065
     Dates: start: 20211206, end: 20211206
  11. METHOTREXATE [Suspect]
     Active Substance: METHOTREXATE
     Dosage: 2700 MILLIGRAM, QD
     Route: 065
     Dates: start: 20220131, end: 20220131
  12. ICLUSIG [Concomitant]
     Active Substance: PONATINIB
     Indication: Leukaemia
     Dosage: 15 MILLIGRAM, QD
     Dates: start: 20210511
  13. SULFAMETHOXAZOLE\TRIMETHOPRIM [Concomitant]
     Active Substance: SULFAMETHOXAZOLE\TRIMETHOPRIM
     Dosage: UNK
  14. FUROSEMIDE [Concomitant]
     Active Substance: FUROSEMIDE
     Dosage: UNK
  15. RABEPRAZOLE SODIUM [Concomitant]
     Active Substance: RABEPRAZOLE SODIUM
     Dosage: UNK
  16. MIROGABALIN BESYLATE [Concomitant]
     Active Substance: MIROGABALIN BESYLATE
     Indication: Hypoaesthesia
     Dosage: 15 MILLIGRAM, BID
     Dates: start: 20210430
  17. CYMBALTA [Concomitant]
     Active Substance: DULOXETINE HYDROCHLORIDE
     Indication: Hypoaesthesia
     Dosage: 40 MILLIGRAM, QD
     Dates: start: 20210901
  18. WARFARIN [Concomitant]
     Active Substance: WARFARIN
     Indication: Aortic valve stenosis
     Dosage: 3.5 MILLIGRAM, QD
     Dates: start: 2010
  19. URSO [Concomitant]
     Active Substance: URSODIOL
     Dosage: UNK
  20. ABILIFY [Concomitant]
     Active Substance: ARIPIPRAZOLE
     Dosage: UNK
  21. MAGNESIUM OXIDE [Concomitant]
     Active Substance: MAGNESIUM OXIDE
     Indication: Constipation
     Dosage: 330 MILLIGRAM, TID
     Route: 065
     Dates: start: 20210702
  22. MIYA-BM [Concomitant]
     Active Substance: CLOSTRIDIUM BUTYRICUM SPORES STRAIN M-55
     Indication: Enterocolitis
     Dosage: 2 TABLETS, TID
     Dates: start: 20211214
  23. ACYCLOVIR [Concomitant]
     Active Substance: ACYCLOVIR
     Indication: Hypogammaglobulinaemia
     Dosage: 200 MILLIGRAM, QD
     Dates: start: 20211227
  24. POTASSIUM ASPARTATE [Concomitant]
     Active Substance: POTASSIUM ASPARTATE
     Indication: Hypokalaemia
     Dosage: 300 MILLIGRAM, TID
     Dates: start: 20211227

REACTIONS (15)
  - Cardio-respiratory arrest [Fatal]
  - Ventricular fibrillation [Fatal]
  - Procalcitonin increased [Fatal]
  - Muscular weakness [Recovered/Resolved]
  - Asthenia [Unknown]
  - Hypogammaglobulinaemia [Recovering/Resolving]
  - Hypokalaemia [Recovering/Resolving]
  - Enterocolitis viral [Recovered/Resolved]
  - Depressed level of consciousness [Recovered/Resolved]
  - Sepsis [Fatal]
  - Neutropenia [Recovered/Resolved]
  - Pyrexia [Recovered/Resolved]
  - Haemolytic anaemia [Not Recovered/Not Resolved]
  - White blood cell count decreased [Recovering/Resolving]
  - Infection [Recovered/Resolved]

NARRATIVE: CASE EVENT DATE: 20210101
